FAERS Safety Report 5031308-7 (Version None)
Quarter: 2006Q2

REPORT INFORMATION
  Report Type: 
  Country: None (occurrence: None)
  Receive Date: 20060616
  Receipt Date: 20060613
  Transmission Date: 20061013
  Serious: Yes (Other)
  Sender: FDA-Public Use
  Company Number: CA-2006-001388

PATIENT

DRUGS (1)
  1. CLIMARA [Suspect]
     Dosage: TRANSDERMAL
     Route: 062

REACTIONS (1)
  - DEAFNESS [None]
